FAERS Safety Report 14421330 (Version 1)
Quarter: 2018Q1

REPORT INFORMATION
  Report Type: Spontaneous
  Country: US (occurrence: US)
  Receive Date: 20180122
  Receipt Date: 20180122
  Transmission Date: 20180509
  Serious: No
  Sender: FDA-Public Use
  Company Number: US-PFIZER INC-2017224084

PATIENT
  Age: 73 Year
  Sex: Female
  Weight: 56.69 kg

DRUGS (4)
  1. NICOTROL [Suspect]
     Active Substance: NICOTINE
     Indication: SMOKING CESSATION THERAPY
     Dosage: UNK
  2. NICOTROL [Suspect]
     Active Substance: NICOTINE
     Dosage: UNK, 2X/DAY
     Route: 045
  3. ENALAPRIL [Concomitant]
     Active Substance: ENALAPRIL
     Indication: HYPERTENSION
     Dosage: 2.5 MG, 1X/DAY
     Route: 048
  4. NICOTROL [Suspect]
     Active Substance: NICOTINE
     Dosage: 4 MG, (UP TO 6 TIMES A DAY)
     Route: 045
     Dates: start: 2015

REACTIONS (1)
  - Expired product administered [Unknown]
